FAERS Safety Report 22255088 (Version 1)
Quarter: 2023Q2

REPORT INFORMATION
  Report Type: Spontaneous
  Country: IN (occurrence: IN)
  Receive Date: 20230426
  Receipt Date: 20230426
  Transmission Date: 20230722
  Serious: Yes (Hospitalization, Other)
  Sender: FDA-Public Use
  Company Number: IN-GLAXOSMITHKLINE-INCH2023HLN018150

PATIENT

DRUGS (3)
  1. DICLOFENAC [Suspect]
     Active Substance: DICLOFENAC
     Indication: Pain
     Dosage: UNK
     Route: 064
  2. ACETAMINOPHEN [Suspect]
     Active Substance: ACETAMINOPHEN
     Indication: Pain
     Dosage: UNK
     Route: 064
  3. IMMUNE GLOBULIN ANTIVENIN NOS [Suspect]
     Active Substance: IMMUNE GLOBULIN ANTIVENIN NOS
     Indication: Snake bite
     Dosage: 10 VIALS
     Route: 064

REACTIONS (4)
  - Foetal distress syndrome [Recovered/Resolved]
  - Respiratory distress [Recovered/Resolved]
  - Premature baby [Unknown]
  - Foetal exposure during pregnancy [Unknown]
